FAERS Safety Report 7469151-1 (Version None)
Quarter: 2011Q2

REPORT INFORMATION
  Report Type: 
  Country: None (occurrence: None)
  Receive Date: 20110510
  Receipt Date: 20110406
  Transmission Date: 20111010
  Serious: Yes (Hospitalization, Other)
  Sender: FDA-Public Use
  Company Number: US-BAYER-200938748NA

PATIENT
  Sex: Female
  Weight: 117.91 kg

DRUGS (2)
  1. YAZ [Suspect]
     Indication: MENSTRUATION IRREGULAR
     Dosage: 1 DF (DAILY DOSE), QD, ORAL
     Route: 048
     Dates: start: 20070101, end: 20090101
  2. YAZ [Suspect]
     Indication: OVARIAN CYST

REACTIONS (1)
  - GALLBLADDER DISORDER [None]
